FAERS Safety Report 4471342-9 (Version None)
Quarter: 2004Q4

REPORT INFORMATION
  Report Type: 
  Country: None (occurrence: None)
  Receive Date: 20041006
  Receipt Date: 20040920
  Transmission Date: 20050328
  Serious: Yes (Other)
  Sender: FDA-Public Use
  Company Number: 2004EU001759

PATIENT
  Age: 61 Year
  Sex: Male

DRUGS (2)
  1. FK506    (TACROLIMUS) [Suspect]
     Indication: RENAL TRANSPLANT
     Dosage: D
     Dates: start: 20020701
  2. MYCOPHENOLATE MOFETIL (MYCOPHENOLATE MOFETIL) [Concomitant]

REACTIONS (2)
  - BK VIRUS INFECTION [None]
  - TUBULOINTERSTITIAL NEPHRITIS [None]
